FAERS Safety Report 4398180-X (Version None)
Quarter: 2004Q3

REPORT INFORMATION
  Report Type: 
  Country: None (occurrence: None)
  Receive Date: 20040713
  Receipt Date: 20040630
  Transmission Date: 20050211
  Serious: Yes (Death, Hospitalization)
  Sender: FDA-Public Use
  Company Number: 2004SE03205

PATIENT
  Age: 77 Year
  Sex: Male

DRUGS (12)
  1. NEXIUM [Suspect]
     Indication: DUODENAL ULCER HAEMORRHAGE
     Dosage: 40 MG QD PO
     Route: 048
     Dates: start: 20040326, end: 20040416
  2. CLINDAMYCIN HCL [Suspect]
     Indication: SEPSIS
     Dosage: 450 MG QD PO
     Route: 048
     Dates: start: 20040328, end: 20040409
  3. SELEXID [Suspect]
     Indication: URINARY TRACT INFECTION
     Dosage: 200 MG QD PO
     Route: 048
     Dates: start: 20040401
  4. METOPROLOL SUCCINATE [Concomitant]
  5. FUROSEMIDE [Concomitant]
  6. PRAVACHOL [Concomitant]
  7. TRIATEC [Concomitant]
  8. GLUCOPHAGE [Concomitant]
  9. IMDUR [Concomitant]
  10. MINIDIAB [Concomitant]
  11. PREDNISOLONE [Concomitant]
  12. CIPROXIN [Concomitant]

REACTIONS (13)
  - ANURIA [None]
  - BLOOD GLUCOSE INCREASED [None]
  - CEREBRAL INFARCTION [None]
  - CLOSTRIDIUM COLITIS [None]
  - CORONARY ARTERY THROMBOSIS [None]
  - HYPOVOLAEMIA [None]
  - METABOLIC ACIDOSIS [None]
  - PLATELET COUNT DECREASED [None]
  - SEPSIS [None]
  - TOXIC EPIDERMAL NECROLYSIS [None]
  - URINARY TRACT INFECTION [None]
  - VARICOSE ULCERATION [None]
  - WHITE BLOOD CELL COUNT INCREASED [None]
